FAERS Safety Report 9258947 (Version 4)
Quarter: 2013Q3

REPORT INFORMATION
  Report Type: Report from Study
  Country: FR (occurrence: FR)
  Receive Date: 20130426
  Receipt Date: 20130813
  Transmission Date: 20140515
  Serious: Yes (Death, Life-Threatening, Hospitalization)
  Sender: FDA-Public Use
  Company Number: FR-TEVA-401180USA

PATIENT
  Age: 55 Year
  Sex: Male
  Weight: 92 kg

DRUGS (11)
  1. LEVACT [Suspect]
     Indication: B-CELL SMALL LYMPHOCYTIC LYMPHOMA
     Dosage: UID/QD
     Route: 041
     Dates: start: 20121126
  2. LEVACT [Suspect]
     Dosage: UID/QD
     Route: 041
     Dates: start: 20121227
  3. LEVACT [Suspect]
     Route: 041
     Dates: start: 20130204, end: 20130206
  4. ARZERRA [Suspect]
     Indication: B-CELL SMALL LYMPHOCYTIC LYMPHOMA
     Route: 041
     Dates: start: 20121119
  5. ARZERRA [Suspect]
     Dosage: UID/QD
     Route: 041
     Dates: start: 20121126
  6. ARZERRA [Suspect]
     Dosage: UID/QD
     Route: 041
     Dates: start: 20121227
  7. ARZERRA [Suspect]
     Dosage: UID/QD
     Route: 041
     Dates: start: 20130204, end: 20130206
  8. SOLU MEDROL [Concomitant]
     Indication: B-CELL SMALL LYMPHOCYTIC LYMPHOMA
     Dosage: PREPHASE REGIMEN
     Dates: start: 20121119, end: 20121119
  9. SOLU MEDROL [Concomitant]
     Dosage: 2000 MILLIGRAM DAILY; ON DAY 1, DAY 2 AND DAY 3 OF CYCLE 1
     Dates: start: 20121126
  10. SOLU MEDROL [Concomitant]
     Dosage: 2000 MILLIGRAM DAILY; ON DAY 1, DAY 2 AND DAY 3 OF CYCLE 2
     Dates: start: 20121227
  11. SOLU MEDROL [Concomitant]
     Dosage: 2000 MILLIGRAM DAILY; ON DAY 1 AND DAY 2 OF CYCLE 3
     Dates: start: 20130204, end: 20130206

REACTIONS (4)
  - Epstein-Barr virus associated lymphoma [Fatal]
  - Cytomegalovirus infection [Recovered/Resolved]
  - Staphylococcal sepsis [Recovered/Resolved]
  - Pancytopenia [Recovered/Resolved]
